FAERS Safety Report 8001672-5 (Version None)
Quarter: 2011Q4

REPORT INFORMATION
  Report Type: 
  Country: None (occurrence: None)
  Receive Date: 20111222
  Receipt Date: 20111208
  Transmission Date: 20120403
  Serious: Yes (Other)
  Sender: FDA-Public Use
  Company Number: US-SANOFI-AVENTIS-2011SA061615

PATIENT
  Age: 84 Year
  Sex: Male

DRUGS (21)
  1. DOCUSATE [Concomitant]
  2. CELEXA [Concomitant]
  3. PLAVIX [Suspect]
     Route: 065
     Dates: start: 20110601
  4. VICODIN [Concomitant]
  5. PANTOPRAZOLE [Concomitant]
  6. MIRALAX [Concomitant]
  7. METOPROLOL TARTRATE [Concomitant]
  8. ROPINIROLE [Concomitant]
  9. LISINOPRIL [Concomitant]
  10. TERAZOSIN HCL [Concomitant]
  11. MIRTAZAPINE [Concomitant]
  12. SENNA [Concomitant]
  13. MAGNESIUM HYDROXIDE TAB [Concomitant]
  14. COUMADIN [Suspect]
     Indication: ATRIAL FIBRILLATION
     Route: 065
     Dates: end: 20110401
  15. NICOTINE [Concomitant]
  16. OXYCODONE HCL [Concomitant]
  17. ASPIRIN [Concomitant]
  18. WARFARIN SODIUM [Suspect]
     Route: 065
     Dates: start: 20110101
  19. SIMVASTATIN [Concomitant]
  20. SUCRALFATE [Concomitant]
  21. GLYCERYL TRINITRATE [Concomitant]

REACTIONS (3)
  - DYSPHAGIA [None]
  - HEAD AND NECK CANCER [None]
  - OROPHARYNGEAL PAIN [None]
